FAERS Safety Report 6791136-9 (Version None)
Quarter: 2010Q2

REPORT INFORMATION
  Report Type: 
  Country: None (occurrence: None)
  Receive Date: 20100624
  Receipt Date: 20100614
  Transmission Date: 20101027
  Serious: Yes (Hospitalization)
  Sender: FDA-Public Use
  Company Number: US-ELI_LILLY_AND_COMPANY-US201006005173

PATIENT
  Sex: Female

DRUGS (8)
  1. FORTEO [Suspect]
     Indication: OSTEOPOROSIS
     Dosage: 20 UG, DAILY (1/D)
  2. WARFARIN [Concomitant]
  3. TYLENOL (CAPLET) [Concomitant]
  4. MOBIC [Concomitant]
  5. NARDIL [Concomitant]
  6. XANAX [Concomitant]
  7. DIOVAN [Concomitant]
  8. VITAMINS WITH MINERALS [Concomitant]

REACTIONS (2)
  - ARTHRALGIA [None]
  - KNEE ARTHROPLASTY [None]
